FAERS Safety Report 21354861 (Version 1)
Quarter: 2022Q3

REPORT INFORMATION
  Report Type: Report from Study
  Country: US (occurrence: US)
  Receive Date: 20220920
  Receipt Date: 20220920
  Transmission Date: 20221027
  Serious: Yes (Hospitalization)
  Sender: FDA-Public Use
  Company Number: US-JNJFOC-20220923197

PATIENT

DRUGS (5)
  1. NIRAPARIB [Suspect]
     Active Substance: NIRAPARIB
     Indication: Prostate cancer
     Dosage: 200 MG
     Route: 048
     Dates: start: 20220817
  2. CETRELIMAB [Suspect]
     Active Substance: CETRELIMAB
     Indication: Prostate cancer
     Dosage: 360 MG
     Route: 042
     Dates: start: 20220406, end: 20220730
  3. CABAZITAXEL [Suspect]
     Active Substance: CABAZITAXEL
     Indication: Prostate cancer
     Dosage: 47/300
     Route: 042
     Dates: start: 20220406, end: 20220730
  4. ERTAPENEM [Concomitant]
     Active Substance: ERTAPENEM
     Indication: Urinary tract infection
     Dosage: UNK
     Route: 065
  5. CARBOPLATIN [Suspect]
     Active Substance: CARBOPLATIN

REACTIONS (1)
  - Seizure [Unknown]

NARRATIVE: CASE EVENT DATE: 20220823
